FAERS Safety Report 8200492 (Version 2)
Quarter: 2012Q4

REPORT INFORMATION
  Report Type: 
  Country: US (occurrence: US)
  Receive Date: 20111026
  Receipt Date: 20121005
  Transmission Date: 20130627
  Serious: Yes (Hospitalization, Other)
  Sender: FDA-Public Use
  Company Number: US-US-EMD SERONO, INC.-7090315

PATIENT
  Age: 64 Year
  Sex: Female

DRUGS (2)
  1. REBIF [Suspect]
     Indication: MULTIPLE SCLEROSIS
     Route: 058
     Dates: start: 20110318
  2. UNSPECIFIED MEDICATION FOR DIABETES [Concomitant]
     Indication: DIABETES MELLITUS

REACTIONS (4)
  - Coronary artery stenosis [Recovering/Resolving]
  - Loss of consciousness [Recovering/Resolving]
  - Dementia [Not Recovered/Not Resolved]
  - Arrhythmia [Unknown]
